FAERS Safety Report 20694884 (Version 3)
Quarter: 2024Q1

REPORT INFORMATION
  Report Type: Report from Study
  Country: GB (occurrence: GB)
  Receive Date: 20220411
  Receipt Date: 20240301
  Transmission Date: 20240410
  Serious: Yes (Other)
  Sender: FDA-Public Use
  Company Number: GB-NOVARTISPH-NVSC2022GB001726

PATIENT
  Age: 38 Year
  Sex: Male

DRUGS (2)
  1. MAYZENT [Suspect]
     Active Substance: SIPONIMOD
     Indication: Secondary progressive multiple sclerosis
     Dosage: 1 DOSAGE FORM, QD
     Route: 048
     Dates: start: 20210705
  2. MAYZENT [Suspect]
     Active Substance: SIPONIMOD
     Indication: Multiple sclerosis
     Dosage: 2 MG
     Route: 048

REACTIONS (10)
  - Multiple sclerosis [Unknown]
  - Muscle spasms [Unknown]
  - Finger deformity [Unknown]
  - Hypotonia [Unknown]
  - Asthenia [Unknown]
  - Mobility decreased [Unknown]
  - Tremor [Unknown]
  - Slow speech [Unknown]
  - Device occlusion [Unknown]
  - Liver function test increased [Unknown]
